FAERS Safety Report 12625028 (Version 1)
Quarter: 2016Q3

REPORT INFORMATION
  Report Type: Spontaneous
  Country: US (occurrence: None)
  Receive Date: 20160804
  Receipt Date: 20160804
  Transmission Date: 20161109
  Serious: Yes (Other)
  Sender: FDA-Public Use
  Company Number: None

PATIENT
  Age: 55 Year
  Sex: Male

DRUGS (1)
  1. DARATUMUMAB JANSSEN [Suspect]
     Active Substance: DARATUMUMAB
     Indication: PLASMA CELL MYELOMA
     Dosage: FIRST TREATMENT INTRAVENOUS DRIP
     Route: 041
     Dates: start: 20160429, end: 20160429

REACTIONS (3)
  - Chest pain [None]
  - Chills [None]
  - Oxygen saturation decreased [None]

NARRATIVE: CASE EVENT DATE: 20160529
